FAERS Safety Report 16036941 (Version 1)
Quarter: 2019Q1

REPORT INFORMATION
  Report Type: Report from Study
  Country: BR (occurrence: BR)
  Receive Date: 20190305
  Receipt Date: 20190305
  Transmission Date: 20190418
  Serious: Yes (Hospitalization, Other)
  Sender: FDA-Public Use
  Company Number: BR-AMGEN-BRASL2019032123

PATIENT
  Age: 71 Year
  Sex: Male

DRUGS (5)
  1. PRADAXA [Concomitant]
     Active Substance: DABIGATRAN ETEXILATE MESYLATE
     Dosage: 150 MG, UNK
  2. ZETIA [Concomitant]
     Active Substance: EZETIMIBE
  3. CLOPIN [Concomitant]
  4. REPATHA [Suspect]
     Active Substance: EVOLOCUMAB
     Indication: DYSLIPIDAEMIA
     Dosage: 140 MG, Q2WK
     Route: 065
     Dates: start: 20161026, end: 20190224
  5. PRADAXA [Concomitant]
     Active Substance: DABIGATRAN ETEXILATE MESYLATE
     Dosage: 110 MG, UNK

REACTIONS (2)
  - Confusional state [Recovered/Resolved]
  - Malaise [Recovered/Resolved]
